FAERS Safety Report 15159366 (Version 2)
Quarter: 2018Q3

REPORT INFORMATION
  Report Type: Report from Study
  Country: US (occurrence: US)
  Receive Date: 20180718
  Receipt Date: 20180723
  Transmission Date: 20181010
  Serious: Yes (Death, Other)
  Sender: FDA-Public Use
  Company Number: US-GILEAD-2018-0350295

PATIENT
  Age: 84 Year
  Sex: Male

DRUGS (1)
  1. RANOLAZINE. [Suspect]
     Active Substance: RANOLAZINE
     Indication: ANGINA PECTORIS
     Dosage: 500 MG, BID
     Route: 048
     Dates: end: 20180709

REACTIONS (2)
  - Head injury [Fatal]
  - Fall [Fatal]

NARRATIVE: CASE EVENT DATE: 20180709
